FAERS Safety Report 8493775-6 (Version None)
Quarter: 2012Q3

REPORT INFORMATION
  Report Type: 
  Country: None (occurrence: None)
  Receive Date: 20120706
  Receipt Date: 20120627
  Transmission Date: 20120928
  Serious: Yes (Hospitalization)
  Sender: FDA-Public Use
  Company Number: US-ABBOTT-12P-163-0939788-00

PATIENT
  Age: 53 Year
  Sex: Female

DRUGS (5)
  1. MERCAPTOPURINE [Concomitant]
     Indication: PRODUCT USED FOR UNKNOWN INDICATION
     Dosage: 1 PILL AND HALF A DAY
  2. HUMIRA [Suspect]
     Dates: start: 20120407
  3. ASACOL HD [Concomitant]
     Indication: PRODUCT USED FOR UNKNOWN INDICATION
     Dosage: 4 TABS A DAY
  4. XANAX [Concomitant]
     Indication: MENOPAUSE
     Dosage: 1.5 TO 2 PILLS PER DAY
  5. HUMIRA [Suspect]
     Indication: CROHN'S DISEASE
     Dosage: LOADING DOSE
     Dates: start: 20120417, end: 20120417

REACTIONS (14)
  - MALAISE [None]
  - HAEMORRHAGE [None]
  - OROPHARYNGEAL PAIN [None]
  - FATIGUE [None]
  - PYREXIA [None]
  - WHITE BLOOD CELL COUNT INCREASED [None]
  - FEELING COLD [None]
  - GASTROINTESTINAL PAIN [None]
  - PAIN [None]
  - PROCTALGIA [None]
  - LOWER RESPIRATORY TRACT INFECTION [None]
  - STRESS [None]
  - FREQUENT BOWEL MOVEMENTS [None]
  - TREMOR [None]
